FAERS Safety Report 15887708 (Version 1)
Quarter: 2019Q1

REPORT INFORMATION
  Report Type: Spontaneous
  Country: US (occurrence: US)
  Receive Date: 20190130
  Receipt Date: 20190130
  Transmission Date: 20190417
  Serious: Yes (Hospitalization)
  Sender: FDA-Public Use
  Company Number: US-IPSEN BIOPHARMACEUTICALS, INC.-2019-01159

PATIENT
  Age: 77 Year
  Sex: Female

DRUGS (21)
  1. LEVOXYL [Concomitant]
     Active Substance: LEVOTHYROXINE SODIUM
  2. VITAMIN D [Concomitant]
     Active Substance: CHOLECALCIFEROL
  3. MULTIVITAMIN [Concomitant]
     Active Substance: VITAMINS
  4. CALCIUM [Concomitant]
     Active Substance: CALCIUM
  5. DYSPORT [Suspect]
     Active Substance: ABOBOTULINUMTOXINA
     Indication: SKIN WRINKLING
  6. GLYCOLAX [Concomitant]
     Active Substance: POLYETHYLENE GLYCOL 3350
  7. GLUCOSAMINE [Concomitant]
     Active Substance: GLUCOSAMINE
  8. CLONAZEPAM. [Concomitant]
     Active Substance: CLONAZEPAM
  9. NAPROXEN. [Concomitant]
     Active Substance: NAPROXEN
  10. DYSPORT [Suspect]
     Active Substance: ABOBOTULINUMTOXINA
     Indication: SKIN WRINKLING
     Dosage: 108 UNITS
     Dates: start: 20181114, end: 20181114
  11. VOLTAREN [Concomitant]
     Active Substance: DICLOFENAC SODIUM
  12. PSYLLIUM HUSK. [Concomitant]
     Active Substance: PSYLLIUM HUSK
  13. KONSYL [Concomitant]
     Active Substance: PSYLLIUM HUSK
  14. DYSPORT [Suspect]
     Active Substance: ABOBOTULINUMTOXINA
     Indication: OFF LABEL USE
  15. METROGEL [Concomitant]
     Active Substance: METRONIDAZOLE
  16. CHONDROITIN [Concomitant]
     Active Substance: CHONDROITIN
  17. DYSPORT [Suspect]
     Active Substance: ABOBOTULINUMTOXINA
     Indication: SKIN WRINKLING
  18. MIRALAX [Concomitant]
     Active Substance: POLYETHYLENE GLYCOL 3350
  19. DOXYCYCLINE. [Concomitant]
     Active Substance: DOXYCYCLINE
     Indication: OCULAR ROSACEA
  20. B50 [Concomitant]
  21. ACETAMINOPHEN. [Concomitant]
     Active Substance: ACETAMINOPHEN

REACTIONS (6)
  - Eyelid ptosis [Recovered/Resolved]
  - Diplopia [Recovered/Resolved]
  - Off label use [Unknown]
  - Intentional product use issue [Unknown]
  - Overdose [Unknown]
  - Intentional product misuse [Unknown]

NARRATIVE: CASE EVENT DATE: 20181114
